FAERS Safety Report 5466276-7 (Version None)
Quarter: 2007Q3

REPORT INFORMATION
  Report Type: 
  Country: None (occurrence: None)
  Receive Date: 20070919
  Receipt Date: 20070906
  Transmission Date: 20080115
  Serious: Yes (Other)
  Sender: FDA-Public Use
  Company Number: GXKR2007GB07811

PATIENT
  Age: 67 Year
  Sex: Male
  Weight: 67 kg

DRUGS (6)
  1. CIPROFLOXACIN [Suspect]
     Indication: BRONCHITIS
     Dosage: 1000 MG, ORAL
     Route: 048
  2. ACETYLSALICYLIC ACID SRT [Concomitant]
  3. ATORVASTATIN CALCIUM [Concomitant]
  4. FLUTICASONE PROPIONATE W/SALMETEROL XINAFOATE (FLUTICASONE PROPIONATE, [Concomitant]
  5. TIOTROPIUM BROMIDE (TIOTROPIUM BROMIDE) [Concomitant]
  6. ZANTAC 150 [Concomitant]

REACTIONS (2)
  - MUSCLE RUPTURE [None]
  - TENDONITIS [None]
